FAERS Safety Report 7938519-9 (Version None)
Quarter: 2011Q4

REPORT INFORMATION
  Report Type: 
  Country: None (occurrence: None)
  Receive Date: 20111123
  Receipt Date: 20111115
  Transmission Date: 20120403
  Serious: Yes (Hospitalization)
  Sender: FDA-Public Use
  Company Number: DE-BAXTER-2011BH034997

PATIENT
  Age: 68 Year
  Sex: Male
  Weight: 85 kg

DRUGS (1)
  1. GAMMAGARD LIQUID [Suspect]
     Indication: IMMUNOGLOBULIN THERAPY
     Route: 042
     Dates: start: 20111101, end: 20111101

REACTIONS (4)
  - COLD SWEAT [None]
  - HYPERSENSITIVITY [None]
  - HYPOTONIA [None]
  - NAUSEA [None]
